FAERS Safety Report 9214850 (Version 2)
Quarter: 2013Q2

REPORT INFORMATION
  Report Type: Spontaneous
  Country: US (occurrence: US)
  Receive Date: 20130405
  Receipt Date: 20130419
  Transmission Date: 20140414
  Serious: Yes (Hospitalization, Congenital Anomaly)
  Sender: FDA-Public Use
  Company Number: US-GLAXOSMITHKLINE-A0932966A

PATIENT
  Age: 0 Year
  Sex: Female
  Weight: 3.4 kg

DRUGS (1)
  1. PAXIL [Suspect]
     Indication: DEPRESSION
     Route: 064
     Dates: start: 200104, end: 200111

REACTIONS (3)
  - Patent ductus arteriosus [Unknown]
  - Sickle cell trait [Unknown]
  - Foetal exposure during pregnancy [Unknown]
